FAERS Safety Report 21243509 (Version 1)
Quarter: 2022Q3

REPORT INFORMATION
  Report Type: Spontaneous
  Country: CO (occurrence: CO)
  Receive Date: 20220823
  Receipt Date: 20220823
  Transmission Date: 20221027
  Serious: Yes (Other)
  Sender: FDA-Public Use
  Company Number: CO-AMNEAL PHARMACEUTICALS-2022-AMRX-02325

PATIENT
  Age: 71 Year
  Sex: Male

DRUGS (13)
  1. CIPROFLOXACIN [Suspect]
     Active Substance: CIPROFLOXACIN
     Indication: Urogenital infection bacterial
     Route: 065
  2. ASPIRIN [Concomitant]
     Active Substance: ASPIRIN
     Indication: Hypertension
     Dosage: 100MG EVERY 12 HR
     Route: 048
  3. ASPIRIN [Concomitant]
     Active Substance: ASPIRIN
     Indication: Myocardial infarction
  4. ATORVASTATIN [Concomitant]
     Active Substance: ATORVASTATIN
     Indication: Hypertension
     Dosage: 40MG, 1 /DAY
     Route: 048
  5. ATORVASTATIN [Concomitant]
     Active Substance: ATORVASTATIN
     Indication: Myocardial infarction
  6. CARVEDILOL [Concomitant]
     Active Substance: CARVEDILOL
     Indication: Hypertension
     Dosage: 6.25 MG EVERY 12 HR
     Route: 048
  7. CARVEDILOL [Concomitant]
     Active Substance: CARVEDILOL
     Indication: Myocardial infarction
  8. CLOPIDOGREL [Concomitant]
     Active Substance: CLOPIDOGREL BISULFATE
     Indication: Hypertension
     Dosage: 75MG, 1 /DAY
     Route: 048
  9. CLOPIDOGREL [Concomitant]
     Active Substance: CLOPIDOGREL BISULFATE
     Indication: Myocardial infarction
  10. OMEPRAZOLE [Concomitant]
     Active Substance: OMEPRAZOLE
     Indication: Hypertension
     Dosage: 20MG, 1 /DAY
     Route: 048
  11. OMEPRAZOLE [Concomitant]
     Active Substance: OMEPRAZOLE
     Indication: Myocardial infarction
  12. VALSARTAN [Concomitant]
     Active Substance: VALSARTAN
     Indication: Hypertension
     Dosage: 160MG, 1 /DAY
     Route: 065
  13. VALSARTAN [Concomitant]
     Active Substance: VALSARTAN
     Indication: Myocardial infarction

REACTIONS (4)
  - Kounis syndrome [Unknown]
  - Acute coronary syndrome [Unknown]
  - Thrombosis [Unknown]
  - Hypersensitivity [Unknown]
